FAERS Safety Report 23679957 (Version 1)
Quarter: 2024Q1

REPORT INFORMATION
  Report Type: Spontaneous
  Country: US (occurrence: US)
  Receive Date: 20240327
  Receipt Date: 20240327
  Transmission Date: 20240410
  Serious: No
  Sender: FDA-Public Use
  Company Number: US-AMGEN-USASP2024057436

PATIENT
  Age: 45 Year
  Sex: Female

DRUGS (1)
  1. REPATHA [Suspect]
     Active Substance: EVOLOCUMAB
     Indication: Product used for unknown indication
     Dosage: UNK
     Route: 065
     Dates: start: 20240114

REACTIONS (10)
  - Mobility decreased [Unknown]
  - Palpitations [Unknown]
  - Dyspnoea [Unknown]
  - Hypoaesthesia [Unknown]
  - Limb discomfort [Unknown]
  - Swelling face [Unknown]
  - Lip swelling [Unknown]
  - Fatigue [Unknown]
  - Head discomfort [Unknown]
  - Headache [Unknown]
